FAERS Safety Report 16287466 (Version 2)
Quarter: 2019Q3

REPORT INFORMATION
  Report Type: Spontaneous
  Country: FR (occurrence: FR)
  Receive Date: 20190508
  Receipt Date: 20190827
  Transmission Date: 20191004
  Serious: Yes (Hospitalization, Other)
  Sender: FDA-Public Use
  Company Number: FR-UCBSA-2019019447

PATIENT
  Age: 32 Year
  Sex: Female

DRUGS (3)
  1. KEPPRA [Suspect]
     Active Substance: LEVETIRACETAM
     Indication: EPILEPSY
     Dosage: 2GRAM/DAY
  2. RIVOTRIL [Suspect]
     Active Substance: CLONAZEPAM
     Dosage: DOSE INCREASED WITH ADDITION OF 1/4 DF IN MORNING
     Dates: start: 20180322, end: 2018
  3. RIVOTRIL [Suspect]
     Active Substance: CLONAZEPAM
     Indication: EPILEPSY
     Dosage: 0.5/DAY (UNIT NOT REPORTED) IN THE EVENING

REACTIONS (4)
  - Maternal exposure before pregnancy [Unknown]
  - Epilepsy [Unknown]
  - Uterine disorder [Unknown]
  - Breech delivery [Unknown]

NARRATIVE: CASE EVENT DATE: 20171001
